FAERS Safety Report 4502369-6 (Version None)
Quarter: 2004Q4

REPORT INFORMATION
  Report Type: 
  Country: None (occurrence: None)
  Receive Date: 20041110
  Receipt Date: 20041028
  Transmission Date: 20050328
  Serious: Yes (Death, Other)
  Sender: FDA-Public Use
  Company Number: 2004086462

PATIENT
  Age: 68 Year
  Sex: Male

DRUGS (11)
  1. ATORVASTATIN (ATORVASTATIN) [Suspect]
     Indication: BLOOD CHOLESTEROL INCREASED
     Dosage: 10 MG (10 MG, 1 IN 1 D), ORAL
     Route: 048
     Dates: start: 19980423
  2. SILDENAFIL CITRATE [Concomitant]
  3. LATANOPROST [Concomitant]
  4. COMBIVENT [Concomitant]
  5. TIOTROPIUM BROMIDE [Concomitant]
  6. RAMIPRIL [Concomitant]
  7. ISOSORBIDE MONONITRATE [Concomitant]
  8. FUROSEMIDE [Concomitant]
  9. DILTIAZEM [Concomitant]
  10. LANSOPRAZOLE [Concomitant]
  11. PREDNISOLONE [Concomitant]

REACTIONS (8)
  - CARDIAC FAILURE CONGESTIVE [None]
  - DECREASED APPETITE [None]
  - DYSPHAGIA [None]
  - DYSSTASIA [None]
  - EMPHYSEMA [None]
  - PNEUMONIA [None]
  - RESPIRATORY DISORDER [None]
  - WEIGHT DECREASED [None]
